FAERS Safety Report 15941688 (Version 1)
Quarter: 2019Q1

REPORT INFORMATION
  Report Type: Spontaneous
  Country: US (occurrence: US)
  Receive Date: 20190210
  Receipt Date: 20190210
  Transmission Date: 20190417
  Serious: Yes (Disabling)
  Sender: FDA-Public Use
  Company Number: None

PATIENT
  Age: 53 Year
  Sex: Male
  Weight: 93.6 kg

DRUGS (5)
  1. ALLEGRA [Concomitant]
     Active Substance: FEXOFENADINE HYDROCHLORIDE
  2. ROSUVASTIN [Suspect]
     Active Substance: ROSUVASTATIN
     Indication: BLOOD CHOLESTEROL INCREASED
     Dosage: ?          QUANTITY:1 TABLET(S);?
     Route: 048
  3. METOPROLOL 12.5 MG BID [Concomitant]
  4. ASPIRIN. [Concomitant]
     Active Substance: ASPIRIN
  5. ROSUVASTIN [Suspect]
     Active Substance: ROSUVASTATIN
     Indication: CORONARY ARTERY DISEASE
     Dosage: ?          QUANTITY:1 TABLET(S);?
     Route: 048

REACTIONS (12)
  - Pyrexia [None]
  - Urine output decreased [None]
  - Prostatic disorder [None]
  - Arthralgia [None]
  - Asthenia [None]
  - Pain [None]
  - Abdominal pain [None]
  - Decreased appetite [None]
  - Chromaturia [None]
  - Depression [None]
  - Hypersomnia [None]
  - Urinary tract infection [None]

NARRATIVE: CASE EVENT DATE: 20190103
